FAERS Safety Report 5406285-7 (Version None)
Quarter: 2007Q3

REPORT INFORMATION
  Report Type: 
  Country: None (occurrence: None)
  Receive Date: 20070806
  Receipt Date: 20070731
  Transmission Date: 20080115
  Serious: Yes (Death)
  Sender: FDA-Public Use
  Company Number: US-BAXTER-2007BH006389

PATIENT
  Age: 85 Year
  Sex: Male
  Weight: 85 kg

DRUGS (17)
  1. DOBUTAMINE HYDROCHLORIDE [Suspect]
     Indication: HYPOTENSION
     Route: 042
  2. DOBUTAMINE HYDROCHLORIDE [Suspect]
     Indication: CARDIAC OUTPUT
     Route: 042
  3. DOBUTAMINE HYDROCHLORIDE [Suspect]
     Indication: VASCULAR RESISTANCE SYSTEMIC
     Route: 042
  4. VASOPRESSIN [Suspect]
     Indication: HYPOTENSION
     Route: 042
  5. VASOPRESSIN [Suspect]
     Indication: CARDIAC OUTPUT
     Route: 042
  6. VASOPRESSIN [Suspect]
     Indication: VASCULAR RESISTANCE SYSTEMIC
     Route: 042
  7. LEVOPHED [Suspect]
     Indication: HYPOTENSION
     Route: 042
  8. LEVOPHED [Suspect]
     Indication: CARDIAC OUTPUT
     Route: 042
  9. LEVOPHED [Suspect]
     Indication: VASCULAR RESISTANCE SYSTEMIC
     Route: 042
  10. WELCHOL [Concomitant]
     Indication: DRUG USE FOR UNKNOWN INDICATION
     Route: 065
  11. TYLENOL (CAPLET) [Concomitant]
     Indication: DRUG USE FOR UNKNOWN INDICATION
     Route: 065
  12. M.V.I. [Concomitant]
     Indication: DRUG USE FOR UNKNOWN INDICATION
     Dosage: DOSE UNIT:UNKNOWN
     Route: 065
  13. CALCIUM CARBONATE [Concomitant]
     Indication: DRUG USE FOR UNKNOWN INDICATION
     Route: 065
  14. PRINIVIL [Concomitant]
     Indication: DRUG USE FOR UNKNOWN INDICATION
     Route: 065
  15. DIGOXIN [Concomitant]
     Indication: DRUG USE FOR UNKNOWN INDICATION
     Route: 065
  16. FOLIC ACID [Concomitant]
     Indication: DRUG USE FOR UNKNOWN INDICATION
     Route: 065
  17. ACTONEL [Concomitant]
     Indication: DRUG USE FOR UNKNOWN INDICATION
     Route: 065

REACTIONS (6)
  - BLOOD PRESSURE DECREASED [None]
  - CARDIAC FAILURE [None]
  - CARDIAC FAILURE CONGESTIVE [None]
  - DEVICE FAILURE [None]
  - MEDICATION ERROR [None]
  - SEPSIS [None]
